FAERS Safety Report 4277879-X (Version None)
Quarter: 2004Q1

REPORT INFORMATION
  Report Type: 
  Country: None (occurrence: None)
  Receive Date: 20040115
  Receipt Date: 20040106
  Transmission Date: 20041129
  Serious: Yes (Hospitalization)
  Sender: FDA-Public Use
  Company Number: CHPA2004US00445

PATIENT
  Age: 51 Year
  Sex: Male
  Weight: 69.4 kg

DRUGS (3)
  1. CONTROL STEP 1 21MG (NCH) (NICOTINE) TRANS-THERAPEUTIC-SYSTEM [Suspect]
     Indication: SMOKING CESSATION THERAPY
     Dosage: 21 MG, QD, TRANSDERMAL
     Route: 062
     Dates: start: 20031101, end: 20031201
  2. ZERIT [Concomitant]
  3. VIDEX (DIDEOXYINOSINE, DIDANOSINE) [Concomitant]

REACTIONS (11)
  - ABDOMINAL PAIN [None]
  - ACCIDENT AT WORK [None]
  - DIZZINESS [None]
  - HAEMORRHAGE [None]
  - INJURY [None]
  - NAUSEA [None]
  - NERVOUSNESS [None]
  - PALLOR [None]
  - PERIPHERAL EMBOLISM [None]
  - THROMBOSIS [None]
  - VISUAL DISTURBANCE [None]
